FAERS Safety Report 25401107 (Version 1)
Quarter: 2025Q2

REPORT INFORMATION
  Report Type: Spontaneous
  Country: US (occurrence: US)
  Receive Date: 20250605
  Receipt Date: 20250605
  Transmission Date: 20250716
  Serious: Yes (Other)
  Sender: DR REDDYS
  Company Number: US-DRL-USA-USA/2025/06/008045

PATIENT
  Age: 53 Year
  Sex: Male

DRUGS (23)
  1. GEMCITABINE [Suspect]
     Active Substance: GEMCITABINE
     Indication: Cholangiocarcinoma
  2. GEMCITABINE [Suspect]
     Active Substance: GEMCITABINE
     Dates: start: 20230328
  3. GEMCITABINE [Suspect]
     Active Substance: GEMCITABINE
     Dates: start: 20230411
  4. GEMCITABINE [Suspect]
     Active Substance: GEMCITABINE
     Dates: start: 20230425
  5. GEMCITABINE [Suspect]
     Active Substance: GEMCITABINE
     Dates: start: 20230531
  6. GEMCITABINE [Suspect]
     Active Substance: GEMCITABINE
     Dates: start: 20230615
  7. GEMCITABINE [Suspect]
     Active Substance: GEMCITABINE
     Dates: start: 20230627
  8. GEMCITABINE [Suspect]
     Active Substance: GEMCITABINE
     Dates: start: 20230713
  9. GEMCITABINE [Suspect]
     Active Substance: GEMCITABINE
     Dates: start: 20230727
  10. DURVALUMAB [Suspect]
     Active Substance: DURVALUMAB
     Indication: Cholangiocarcinoma
  11. DURVALUMAB [Suspect]
     Active Substance: DURVALUMAB
     Dates: start: 20230328
  12. DURVALUMAB [Suspect]
     Active Substance: DURVALUMAB
     Dates: start: 20230531
  13. DURVALUMAB [Suspect]
     Active Substance: DURVALUMAB
     Dates: start: 20230627
  14. DURVALUMAB [Suspect]
     Active Substance: DURVALUMAB
     Dates: start: 20230727
  15. PACLITAXEL [Suspect]
     Active Substance: PACLITAXEL
     Indication: Cholangiocarcinoma
  16. PACLITAXEL [Suspect]
     Active Substance: PACLITAXEL
     Dates: start: 20230328
  17. PACLITAXEL [Suspect]
     Active Substance: PACLITAXEL
     Dates: start: 20230411
  18. PACLITAXEL [Suspect]
     Active Substance: PACLITAXEL
     Dates: start: 20230425
  19. PACLITAXEL [Suspect]
     Active Substance: PACLITAXEL
     Dates: start: 20230531
  20. PACLITAXEL [Suspect]
     Active Substance: PACLITAXEL
     Dates: start: 20230615
  21. PACLITAXEL [Suspect]
     Active Substance: PACLITAXEL
     Dates: start: 20230627
  22. PACLITAXEL [Suspect]
     Active Substance: PACLITAXEL
     Dates: start: 20230713
  23. PACLITAXEL [Suspect]
     Active Substance: PACLITAXEL
     Dates: start: 20230727

REACTIONS (2)
  - Thrombocytopenia [Unknown]
  - Product use in unapproved indication [Unknown]
